FAERS Safety Report 6264478-3 (Version None)
Quarter: 2009Q3

REPORT INFORMATION
  Report Type: 
  Country: None (occurrence: None)
  Receive Date: 20090710
  Receipt Date: 20090629
  Transmission Date: 20100115
  Serious: Yes (Hospitalization)
  Sender: FDA-Public Use
  Company Number: JP-ASTRAZENECA-2009SE04034

PATIENT
  Age: 77 Year
  Sex: Male

DRUGS (7)
  1. BLOPRESS TABLETS 4 [Suspect]
     Indication: HYPERTENSION
     Route: 048
     Dates: end: 20090626
  2. CEROCRAL [Suspect]
     Route: 048
  3. DORNER [Suspect]
     Route: 048
  4. LIPOVAS [Suspect]
     Route: 048
  5. HARNAL [Suspect]
     Route: 048
  6. DEPAS [Suspect]
     Route: 048
  7. HERBESSER [Suspect]
     Route: 048

REACTIONS (1)
  - INTERSTITIAL LUNG DISEASE [None]
